FAERS Safety Report 5480727-3 (Version None)
Quarter: 2007Q4

REPORT INFORMATION
  Report Type: 
  Country: None (occurrence: None)
  Receive Date: 20071009
  Receipt Date: 20071002
  Transmission Date: 20080405
  Serious: Yes (Hospitalization)
  Sender: FDA-Public Use
  Company Number: US-SANOFI-SYNTHELABO-F03200700186

PATIENT
  Age: 74 Year
  Sex: Male

DRUGS (10)
  1. ZANTAC [Concomitant]
     Dosage: UNK
     Route: 048
  2. XYLOXYLIN [Concomitant]
     Dosage: UNK
     Route: 065
  3. TOPROL-XL [Concomitant]
     Dosage: UNK
     Route: 048
  4. PRILOSEC [Concomitant]
     Dosage: UNK
     Route: 048
  5. MAALOX [Concomitant]
     Dosage: UNK
     Route: 048
  6. LISINOPRIL [Concomitant]
     Dosage: UNK
     Route: 048
  7. LIPITOR [Concomitant]
     Dosage: UNK
     Route: 048
  8. HYDROCODONE [Concomitant]
     Dosage: UNK
     Route: 048
  9. FLUOROURACIL [Suspect]
     Indication: GASTROOESOPHAGEAL CANCER
     Dosage: 2500 MG OVER 5 DAYS
     Route: 042
     Dates: start: 20070824, end: 20070824
  10. OXALIPLATIN [Suspect]
     Indication: GASTROOESOPHAGEAL CANCER
     Route: 042
     Dates: start: 20070824, end: 20070824

REACTIONS (1)
  - DYSPHAGIA [None]
